FAERS Safety Report 15745877 (Version 1)
Quarter: 2018Q4

REPORT INFORMATION
  Report Type: Spontaneous
  Country: US (occurrence: US)
  Receive Date: 20181220
  Receipt Date: 20181220
  Transmission Date: 20190205
  Serious: Yes (Other)
  Sender: FDA-Public Use
  Company Number: US-TEVA-2018-US-987734

PATIENT

DRUGS (1)
  1. ETHOSUXIMIDE. [Suspect]
     Active Substance: ETHOSUXIMIDE
     Dosage: FORM STRENGTH: 250 MG/5 ML.
     Route: 048

REACTIONS (2)
  - Product storage error [Unknown]
  - Epilepsy [Unknown]
